FAERS Safety Report 6200246-6 (Version None)
Quarter: 2009Q2

REPORT INFORMATION
  Report Type: 
  Country: None (occurrence: None)
  Receive Date: 20090522
  Receipt Date: 20090515
  Transmission Date: 20091009
  Serious: Yes (Other)
  Sender: FDA-Public Use
  Company Number: FR-JNJFOC-20090503565

PATIENT
  Age: 21 Year
  Sex: Male

DRUGS (5)
  1. RISPERDAL [Suspect]
     Route: 048
  2. RISPERDAL [Suspect]
     Indication: PSYCHOTIC DISORDER
     Dosage: 1.5 DOSE ONCE A DAY
     Route: 048
  3. EFFEXOR [Concomitant]
  4. LEPTICUR [Concomitant]
  5. RIVOTRIL [Concomitant]

REACTIONS (5)
  - ASTHENIA [None]
  - INSOMNIA [None]
  - LEUKOPENIA [None]
  - NEUTROPENIA [None]
  - WEIGHT DECREASED [None]
